FAERS Safety Report 24306303 (Version 3)
Quarter: 2025Q2

REPORT INFORMATION
  Report Type: Spontaneous
  Country: US (occurrence: US)
  Receive Date: 20240911
  Receipt Date: 20250611
  Transmission Date: 20250716
  Serious: No
  Sender: BRISTOL-MYERS SQUIBB COMPANY
  Company Number: US-BRISTOL-MYERS SQUIBB COMPANY-2024-143887

PATIENT
  Age: 35 Year
  Sex: Female

DRUGS (1)
  1. ORENCIA [Suspect]
     Active Substance: ABATACEPT
     Indication: Product used for unknown indication
     Dosage: ONCE WEEKLY
     Route: 058

REACTIONS (4)
  - Headache [Unknown]
  - Pyrexia [Unknown]
  - Nasopharyngitis [Unknown]
  - Migraine [Unknown]

NARRATIVE: CASE EVENT DATE: 20250226
